FAERS Safety Report 16186365 (Version 1)
Quarter: 2019Q2

REPORT INFORMATION
  Report Type: Spontaneous
  Country: FR (occurrence: FR)
  Receive Date: 20190411
  Receipt Date: 20190411
  Transmission Date: 20190711
  Serious: Yes (Life-Threatening)
  Sender: FDA-Public Use
  Company Number: FR-MYLANLABS-2019M1033647

PATIENT
  Age: 72 Year
  Sex: Male
  Weight: 65 kg

DRUGS (20)
  1. LOVENOX [Concomitant]
     Active Substance: ENOXAPARIN SODIUM
     Dosage: 12000 INTERNATIONAL UNIT, QD
     Route: 058
  2. IPRATROPIUM [Concomitant]
     Active Substance: IPRATROPIUM
     Dosage: 1.5 MILLIGRAM, QD
     Route: 055
  3. DIFFU K [Concomitant]
     Active Substance: POTASSIUM CHLORIDE
     Dosage: 6 DOSAGE FORM, QD (EN FONCTION DE LA KALI?MIE)
     Route: 048
  4. METHYLPREDNISOLONE. [Concomitant]
     Active Substance: METHYLPREDNISOLONE
     Dosage: 60 MILLIGRAM, QD
     Route: 042
     Dates: start: 20180808
  5. FUROSEMIDE. [Concomitant]
     Active Substance: FUROSEMIDE
     Dosage: 2 UNK, QD (60 MG LE MATIN ET 40 MG ? MIDI)
     Route: 048
  6. CARBOPLATIN. [Suspect]
     Active Substance: CARBOPLATIN
     Indication: SMALL CELL LUNG CANCER RECURRENT
     Dosage: 556 MILLIGRAM
     Route: 041
     Dates: start: 20180808
  7. JANUVIA [Concomitant]
     Active Substance: SITAGLIPTIN PHOSPHATE
     Dosage: 100 MILLIGRAM, QD
     Route: 048
  8. LYRICA [Concomitant]
     Active Substance: PREGABALIN
     Dosage: 25 MILLIGRAM, QD
     Route: 048
  9. ATARAX [Concomitant]
     Active Substance: HYDROXYZINE HYDROCHLORIDE
     Dosage: 25 MILLIGRAM, QD
     Route: 048
  10. ONDANSETRON [Concomitant]
     Active Substance: ONDANSETRON
     Dosage: 16 MILLIGRAM, QD
     Route: 042
     Dates: start: 20180808
  11. SPORANOX [Concomitant]
     Active Substance: ITRACONAZOLE
     Dosage: 100 MILLIGRAM, QD
     Route: 048
  12. AMLODIPINE [Concomitant]
     Active Substance: AMLODIPINE BESYLATE
     Dosage: 10 MILLIGRAM, QD
     Route: 048
  13. BRICANYL [Concomitant]
     Active Substance: TERBUTALINE SULFATE
     Dosage: 20 MILLIGRAM, QD
     Route: 055
  14. ETOPOSIDE. [Suspect]
     Active Substance: ETOPOSIDE
     Indication: SMALL CELL LUNG CANCER RECURRENT
     Dosage: 138 MILLIGRAM, QD (PERFUSION DU J2 STOPP? AVANT LA FIN)
     Route: 041
     Dates: start: 20180808, end: 20180809
  15. NOVORAPID [Concomitant]
     Active Substance: INSULIN ASPART
     Dosage: EN FONCTION DES GLYC?MIES PR?-PRANDIALES
     Route: 058
  16. ALDACTONE [Concomitant]
     Active Substance: SPIRONOLACTONE
     Dosage: 12.5 MILLIGRAM, QD
     Route: 048
  17. VALSARTAN. [Concomitant]
     Active Substance: VALSARTAN
     Dosage: 80 MILLIGRAM, QD
     Route: 048
  18. EMEND [Concomitant]
     Active Substance: APREPITANT
     Dosage: 1 DOSAGE FORM, QD
     Route: 048
     Dates: start: 20180808
  19. PRIMPERAN [Concomitant]
     Active Substance: METOCLOPRAMIDE HYDROCHLORIDE
     Dosage: 30 MILLIGRAM, QD
     Route: 042
     Dates: start: 20180808
  20. MECIR [Concomitant]
     Active Substance: TAMSULOSIN HYDROCHLORIDE
     Dosage: 0.4 MILLIGRAM, QD
     Route: 048

REACTIONS (1)
  - Tumour lysis syndrome [Recovered/Resolved with Sequelae]

NARRATIVE: CASE EVENT DATE: 20180809
